FAERS Safety Report 7290236-7 (Version None)
Quarter: 2011Q1

REPORT INFORMATION
  Report Type: 
  Country: None (occurrence: None)
  Receive Date: 20110214
  Receipt Date: 20110210
  Transmission Date: 20110831
  Serious: Yes (Life-Threatening, Hospitalization)
  Sender: FDA-Public Use
  Company Number: PHHY2010JP88164

PATIENT
  Sex: Female
  Weight: 68 kg

DRUGS (10)
  1. BLOPRESS [Concomitant]
     Indication: HYPERTENSION
     Dosage: 4 MG, UNK
     Route: 048
     Dates: start: 20050128, end: 20101012
  2. RASILEZ [Suspect]
     Indication: HYPERTENSION
     Dosage: 150 MG, QD
     Route: 048
     Dates: start: 20101110, end: 20101207
  3. TELMISARTAN AND HYDROCHLOROTHIAZIDE [Concomitant]
     Indication: HYPERTENSION
     Dosage: UNK
     Route: 048
     Dates: start: 20101012
  4. SELOKEN [Suspect]
     Indication: HYPERTENSION
     Dosage: 80 MG DAILY
     Route: 048
     Dates: start: 20050128, end: 20101220
  5. CONIEL [Concomitant]
     Indication: HYPERTENSION
     Dosage: UNK
     Route: 048
     Dates: start: 20050506
  6. CRESTOR [Concomitant]
     Indication: HYPERLIPIDAEMIA
     Dosage: 2.5 MG, UNK
     Route: 048
     Dates: start: 20080130
  7. ADALAT CC [Concomitant]
     Indication: HYPERTENSION
     Dosage: UNK
     Route: 048
     Dates: start: 20050128
  8. RASILEZ [Suspect]
     Dosage: 300 MG, QD
     Route: 048
     Dates: start: 20101208, end: 20101211
  9. ASPIRIN [Concomitant]
     Indication: CEREBRAL INFARCTION
     Dosage: 100 MG, UNK
     Route: 048
     Dates: start: 20080130
  10. BLOPRESS [Concomitant]
     Dosage: 12 MG, UNK
     Route: 048
     Dates: end: 20101012

REACTIONS (5)
  - ATRIOVENTRICULAR BLOCK SECOND DEGREE [None]
  - HEPATIC FUNCTION ABNORMAL [None]
  - ARRHYTHMIA [None]
  - CHEST DISCOMFORT [None]
  - DIZZINESS [None]
